FAERS Safety Report 10362691 (Version 1)
Quarter: 2014Q3

REPORT INFORMATION
  Report Type: Spontaneous
  Country: US (occurrence: US)
  Receive Date: 20140805
  Receipt Date: 20140805
  Transmission Date: 20150326
  Serious: No
  Sender: FDA-Public Use
  Company Number: US-PFIZER INC-2014215584

PATIENT
  Age: 22 Year
  Sex: Male
  Weight: 111 kg

DRUGS (3)
  1. METHENAMINE [Concomitant]
     Active Substance: METHENAMINE
     Indication: URINARY TRACT DISORDER
     Dosage: UNK
  2. PREDNISOLON [Concomitant]
     Active Substance: PREDNISOLONE
     Dosage: UNK
  3. RAPAMUNE [Suspect]
     Active Substance: SIROLIMUS
     Indication: PROPHYLAXIS AGAINST TRANSPLANT REJECTION
     Dosage: 1 MG, 3X/DAY
     Route: 048

REACTIONS (1)
  - Tooth infection [Unknown]
